FAERS Safety Report 4639125-4 (Version None)
Quarter: 2005Q2

REPORT INFORMATION
  Report Type: 
  Country: None (occurrence: None)
  Receive Date: 20050419
  Receipt Date: 20050302
  Transmission Date: 20051028
  Serious: Yes (Hospitalization)
  Sender: FDA-Public Use
  Company Number: US-GLAXOSMITHKLINE-A0547915A

PATIENT
  Age: 72 Year
  Sex: Male
  Weight: 90 kg

DRUGS (15)
  1. ECOTRIN ADULT LOW STRENGTH TABLETS [Suspect]
     Indication: ANALGESIC INTERVENTION SUPPORTIVE THERAPY
     Dosage: 81MG PER DAY
     Route: 048
     Dates: start: 19990101, end: 20050123
  2. CELEBREX [Suspect]
     Indication: ARTHRITIS
     Route: 048
     Dates: end: 20050123
  3. VIOXX [Suspect]
     Indication: ARTHRITIS
     Route: 048
     Dates: end: 20050123
  4. BEXTRA [Suspect]
     Indication: ARTHRALGIA
     Dates: end: 20050123
  5. AVANDIA [Concomitant]
     Indication: DIABETES MELLITUS NON-INSULIN-DEPENDENT
     Dosage: 8MG PER DAY
     Route: 048
  6. LIPITOR [Concomitant]
     Indication: BLOOD CHOLESTEROL INCREASED
     Dosage: 40MG PER DAY
     Route: 048
  7. MULTIPLE VITAMIN [Concomitant]
     Indication: VITAMIN SUPPLEMENTATION
     Route: 048
  8. FLUCONAZOLE [Concomitant]
     Indication: ONYCHOMYCOSIS
     Dosage: 200MG CUMULATIVE DOSE
     Route: 048
  9. ALTACE [Concomitant]
     Indication: ILL-DEFINED DISORDER
     Dosage: 2.5MG PER DAY
     Route: 048
  10. (TRIMETHOPRIM + SULFAMETHOXAZOL) [Concomitant]
     Indication: INFECTION PROPHYLAXIS
     Route: 048
  11. ATENOLOL [Concomitant]
     Indication: DRUG USE FOR UNKNOWN INDICATION
     Dosage: 50MG PER DAY
  12. VITAMIN E [Concomitant]
     Indication: DRUG USE FOR UNKNOWN INDICATION
     Dosage: 400UD PER DAY
  13. TRAZODONE HCL [Concomitant]
     Indication: DRUG USE FOR UNKNOWN INDICATION
     Dosage: 400MG AT NIGHT
  14. TYLENOL [Concomitant]
     Indication: DRUG USE FOR UNKNOWN INDICATION
  15. LEVITRA [Concomitant]
     Indication: ERECTILE DYSFUNCTION

REACTIONS (13)
  - ATRIOVENTRICULAR BLOCK FIRST DEGREE [None]
  - AZOTAEMIA [None]
  - CHEST PAIN [None]
  - DIZZINESS [None]
  - DYSPEPSIA [None]
  - FAECES DISCOLOURED [None]
  - GASTRIC ULCER HAEMORRHAGE [None]
  - HAEMOGLOBIN DECREASED [None]
  - HEADACHE [None]
  - HYPERHIDROSIS [None]
  - RECTAL HAEMORRHAGE [None]
  - VOLUME BLOOD DECREASED [None]
  - WHITE BLOOD CELL COUNT DECREASED [None]
